FAERS Safety Report 21068122 (Version 1)
Quarter: 2022Q3

REPORT INFORMATION
  Report Type: Spontaneous
  Country: TR (occurrence: TR)
  Receive Date: 20220712
  Receipt Date: 20220712
  Transmission Date: 20221027
  Serious: Yes (Death, Hospitalization, Other)
  Sender: FDA-Public Use
  Company Number: TR-SUN PHARMACEUTICAL INDUSTRIES LTD-2022RR-344242

PATIENT
  Age: 64 Year
  Sex: Male

DRUGS (14)
  1. CLARITHROMYCIN [Suspect]
     Active Substance: CLARITHROMYCIN
     Indication: Pneumonia aspiration
     Dosage: UNK
     Route: 065
  2. CLARITHROMYCIN [Suspect]
     Active Substance: CLARITHROMYCIN
     Indication: Urinary tract infection
  3. MEROPENEM [Suspect]
     Active Substance: MEROPENEM
     Indication: Pneumonia aspiration
     Dosage: 1 GRAM, TID
     Route: 065
  4. MEROPENEM [Suspect]
     Active Substance: MEROPENEM
     Indication: Acinetobacter infection
  5. PIPERACILLIN SODIUM\TAZOBACTAM SODIUM [Suspect]
     Active Substance: PIPERACILLIN SODIUM\TAZOBACTAM SODIUM
     Indication: Pneumonia aspiration
     Dosage: UNK
     Route: 065
  6. PIPERACILLIN SODIUM\TAZOBACTAM SODIUM [Suspect]
     Active Substance: PIPERACILLIN SODIUM\TAZOBACTAM SODIUM
     Indication: Urinary tract infection
  7. TIGECYCLINE [Suspect]
     Active Substance: TIGECYCLINE
     Indication: Pneumonia aspiration
     Dosage: 100 MILLIGRAM, LOADING DOSE
     Route: 042
  8. TIGECYCLINE [Suspect]
     Active Substance: TIGECYCLINE
     Indication: Acinetobacter infection
     Dosage: 50 MILLIGRAM, 2X
     Route: 042
  9. TIGECYCLINE [Suspect]
     Active Substance: TIGECYCLINE
     Dosage: 50 MILLIGRAM, BID
     Route: 042
  10. AMPHOTERICIN B [Suspect]
     Active Substance: AMPHOTERICIN B
     Indication: Trichosporon infection
     Dosage: 3 MILLIGRAM/KILOGRAM, DAILY
     Route: 065
  11. FLUCONAZOLE [Suspect]
     Active Substance: FLUCONAZOLE
     Indication: Trichosporon infection
     Dosage: 400 MILLIGRAM, DAILY
     Route: 042
  12. COLISTIMETHATE SODIUM [Suspect]
     Active Substance: COLISTIMETHATE SODIUM
     Indication: Pneumonia aspiration
     Dosage: 150 MILLIGRAM, 2X1/2/DAY, INHALED
     Route: 045
  13. COLISTIMETHATE SODIUM [Suspect]
     Active Substance: COLISTIMETHATE SODIUM
     Indication: Acinetobacter infection
     Dosage: 150 MILLIGRAM, 2X1/2/DAY, INHALED
     Route: 045
  14. MICAFUNGIN [Suspect]
     Active Substance: MICAFUNGIN
     Indication: Trichosporon infection
     Dosage: 150 MILLIGRAM, 1X1
     Route: 042

REACTIONS (2)
  - Cardiac disorder [Fatal]
  - Trichosporon infection [Unknown]
